FAERS Safety Report 16646753 (Version 1)
Quarter: 2019Q3

REPORT INFORMATION
  Report Type: Spontaneous
  Country: LT (occurrence: LT)
  Receive Date: 20190730
  Receipt Date: 20190730
  Transmission Date: 20191004
  Serious: Yes (Life-Threatening, Other)
  Sender: FDA-Public Use
  Company Number: LT-AMGEN-LTUSP2019119632

PATIENT

DRUGS (10)
  1. DIPHENHYDRAMINE. [Concomitant]
     Active Substance: DIPHENHYDRAMINE
     Indication: PREMEDICATION
     Dosage: 25 MILLIGRAM, QD
     Route: 042
  2. VP-16 [Suspect]
     Active Substance: ETOPOSIDE
     Dosage: 1.5 GRAM PER SQUARE METRE
     Route: 042
  3. PLERIXAFOR [Suspect]
     Active Substance: PLERIXAFOR
     Indication: AUTOLOGOUS HAEMATOPOIETIC STEM CELL TRANSPLANT
     Dosage: 0.24 MILLIGRAM/KILOGRAM
     Route: 058
  4. DEXAMETHASONE. [Concomitant]
     Active Substance: DEXAMETHASONE
     Indication: PREMEDICATION
     Dosage: 8 MILLIGRAM QD(ON DAY 1 TO 4)
     Route: 042
  5. VALACYCLOVIR [Concomitant]
     Active Substance: VALACYCLOVIR HYDROCHLORIDE
     Indication: PROPHYLAXIS
     Dosage: 500 MILLIGRAM, BID
  6. SULFAMETHOXAZOLE AND TRIMETHOPRIM [Concomitant]
     Active Substance: SULFAMETHOXAZOLE\TRIMETHOPRIM
     Indication: PROPHYLAXIS
     Dosage: 960 MILLIGRAM 2 TIMES A DAY TWICE A WEEK
  7. FILGRASTIM [Suspect]
     Active Substance: FILGRASTIM
     Indication: AUTOLOGOUS HAEMATOPOIETIC STEM CELL TRANSPLANT
     Dosage: 10 MICROGRAM/KILOGRAM, QD (FROM DAY 7)
     Route: 058
  8. ONDANSETRON [Concomitant]
     Active Substance: ONDANSETRON
     Indication: PROPHYLAXIS
     Dosage: 16 MILLIGRAM, BID
  9. CIPROFLOXACIN. [Concomitant]
     Active Substance: CIPROFLOXACIN
     Indication: ANTIBIOTIC PROPHYLAXIS
     Dosage: 500 MILLIGRAM, BID
  10. VP-16 [Suspect]
     Active Substance: ETOPOSIDE
     Indication: AUTOLOGOUS HAEMATOPOIETIC STEM CELL TRANSPLANT
     Dosage: 2 GRAM PER SQUARE METRE (DAY 1 AND 4)
     Route: 042

REACTIONS (12)
  - Septic shock [Unknown]
  - Pneumonia [Unknown]
  - Herpes virus infection [Unknown]
  - Influenza [Unknown]
  - Disease progression [Unknown]
  - Urinary tract infection [Unknown]
  - Acute kidney injury [Unknown]
  - Bacteraemia [Unknown]
  - Mucosal inflammation [Unknown]
  - Febrile neutropenia [Recovered/Resolved]
  - Bone marrow failure [Unknown]
  - Adverse event [Unknown]
